FAERS Safety Report 4724575-8 (Version None)
Quarter: 2005Q3

REPORT INFORMATION
  Report Type: 
  Country: None (occurrence: None)
  Receive Date: 20050719
  Receipt Date: 20050719
  Transmission Date: 20060218
  Serious: Yes (Hospitalization)
  Sender: FDA-Public Use
  Company Number: None

PATIENT
  Age: 48 Year
  Sex: Male
  Weight: 127.0072 kg

DRUGS (3)
  1. PROMETHAZINE [Suspect]
     Indication: NAUSEA
     Dosage: 12.5 MG IV
     Route: 042
     Dates: start: 20050517
  2. PROMETHAZINE [Suspect]
     Indication: VOMITING
     Dosage: 12.5 MG IV
     Route: 042
     Dates: start: 20050517
  3. TORADOL [Concomitant]

REACTIONS (2)
  - PAIN [None]
  - VENOUS THROMBOSIS [None]
